FAERS Safety Report 7613484-2 (Version None)
Quarter: 2011Q3

REPORT INFORMATION
  Report Type: 
  Country: None (occurrence: None)
  Receive Date: 20110708
  Receipt Date: 20110630
  Transmission Date: 20111222
  Serious: Yes (Hospitalization, Other)
  Sender: FDA-Public Use
  Company Number: AT-ACCORD-008753

PATIENT
  Sex: Female

DRUGS (3)
  1. PHENOBARBITAL TAB [Suspect]
     Dosage: TRANSPLACENTAL
     Route: 064
  2. LEVETIRACETAM [Suspect]
     Dosage: 3000.00-MG-1.0DAY / TRANSPLACENTAL
     Route: 064
  3. PRIMIDONE [Suspect]
     Dosage: 187.50-MG-1.0DAYS / TRANSPLACENTAL
     Route: 064

REACTIONS (3)
  - MATERNAL DRUGS AFFECTING FOETUS [None]
  - DRUG WITHDRAWAL CONVULSIONS [None]
  - EXPOSURE DURING BREAST FEEDING [None]
